FAERS Safety Report 16274733 (Version 1)
Quarter: 2019Q2

REPORT INFORMATION
  Report Type: Spontaneous
  Country: US (occurrence: US)
  Receive Date: 20190506
  Receipt Date: 20190506
  Transmission Date: 20190711
  Serious: No
  Sender: FDA-Public Use
  Company Number: US-JNJFOC-20190429565

PATIENT
  Age: 63 Year
  Sex: Male
  Weight: 97.98 kg

DRUGS (1)
  1. STELARA [Suspect]
     Active Substance: USTEKINUMAB
     Indication: PSORIATIC ARTHROPATHY
     Route: 058
     Dates: start: 201712

REACTIONS (2)
  - Product dose omission [Unknown]
  - Device deployment issue [Unknown]

NARRATIVE: CASE EVENT DATE: 20190416
